FAERS Safety Report 23994029 (Version 1)
Quarter: 2024Q2

REPORT INFORMATION
  Report Type: Spontaneous
  Country: US (occurrence: US)
  Receive Date: 20240620
  Receipt Date: 20240620
  Transmission Date: 20240715
  Serious: Yes (Hospitalization, Other)
  Sender: FDA-Public Use
  Company Number: US-AMNEAL-2024-AMRX-02239

PATIENT
  Sex: Male
  Weight: 87.982 kg

DRUGS (1)
  1. BACLOFEN [Suspect]
     Active Substance: BACLOFEN
     Indication: Muscle spasms
     Dosage: 78.09287 MCG\DAY
     Route: 037

REACTIONS (3)
  - Device breakage [Unknown]
  - Muscle spasticity [Unknown]
  - Pain [Unknown]
